FAERS Safety Report 12527820 (Version 3)
Quarter: 2016Q3

REPORT INFORMATION
  Report Type: Spontaneous
  Country: JP (occurrence: JP)
  Receive Date: 20160705
  Receipt Date: 20160831
  Transmission Date: 20161109
  Serious: Yes (Hospitalization, Other)
  Sender: FDA-Public Use
  Company Number: JP-VIFOR (INTERNATIONAL) INC.-VIT-2016-03222

PATIENT
  Age: 74 Year
  Sex: Male
  Weight: 70 kg

DRUGS (14)
  1. PREDONINE [Concomitant]
     Active Substance: PREDNISOLONE\PREDNISOLONE ACETATE\PREDNISOLONE SODIUM SUCCINATE
     Route: 048
     Dates: start: 20160215, end: 20160508
  2. MIRCERA [Suspect]
     Active Substance: METHOXY POLYETHYLENE GLYCOL-EPOETIN BETA
     Route: 030
     Dates: start: 20160213, end: 20160304
  3. MIRCERA [Suspect]
     Active Substance: METHOXY POLYETHYLENE GLYCOL-EPOETIN BETA
     Route: 030
     Dates: start: 20151226, end: 20160109
  4. FALECALCITRIOL [Concomitant]
     Active Substance: FALECALCITRIOL
     Indication: PROPHYLAXIS
     Dosage: AMOUNT OF 1 ONCE ADMINISTRATION: 0.15 (UNIT UNCERTAINTY)
     Route: 048
     Dates: start: 20160310
  5. WARFARIN [Concomitant]
     Active Substance: WARFARIN
     Indication: ATRIAL FIBRILLATION
     Dosage: DOSE INTERVAL UNCERTAINTY (1.5 MG)
     Route: 048
     Dates: start: 201603
  6. EQUA [Concomitant]
     Active Substance: VILDAGLIPTIN
     Dosage: AMOUNT OF 1 ONCE ADMINISTRATION: 50 (UNIT UNCERTAINTY)
     Route: 048
     Dates: start: 20150905
  7. INSULIN [Concomitant]
     Active Substance: INSULIN NOS
     Dates: start: 199910
  8. BLOPRESS [Concomitant]
     Active Substance: CANDESARTAN CILEXETIL
     Route: 065
     Dates: start: 201512
  9. MIRCERA [Suspect]
     Active Substance: METHOXY POLYETHYLENE GLYCOL-EPOETIN BETA
     Indication: NEPHROGENIC ANAEMIA
     Route: 030
     Dates: start: 20150808, end: 20151205
  10. CALCIUM CARBONATE. [Concomitant]
     Active Substance: CALCIUM CARBONATE
     Dosage: AMOUNT OF 1 ONCE ADMINISTRATION: 250 (UNIT UNCERTAINTY)
     Route: 048
     Dates: start: 20160215
  11. DOCUSATE SODIUM. [Concomitant]
     Active Substance: DOCUSATE SODIUM
     Dosage: DOSAGE UNCERTAIN
     Route: 048
  12. MIRCERA [Suspect]
     Active Substance: METHOXY POLYETHYLENE GLYCOL-EPOETIN BETA
     Route: 030
     Dates: start: 20160318, end: 20160506
  13. MYSLEE [Concomitant]
     Active Substance: ZOLPIDEM TARTRATE
     Dosage: AMOUNT OF 1 ONCE ADMINISTRATION: 5 (UNIT UNCERTAINTY)
     Route: 048
     Dates: start: 20160215
  14. ALOSENN [Concomitant]
     Active Substance: SENNA LEAF
     Dosage: DOSAGE UNCERTAIN
     Route: 048
     Dates: start: 20160215, end: 20160424

REACTIONS (7)
  - Amputation of penis [Unknown]
  - Large intestinal haemorrhage [Unknown]
  - Haematocrit decreased [Unknown]
  - Diabetic gangrene [Unknown]
  - Anaemia [Unknown]
  - Intentional product use issue [Unknown]
  - Haemoglobin decreased [Unknown]

NARRATIVE: CASE EVENT DATE: 20150808
